FAERS Safety Report 8588993 (Version 2)
Quarter: 2013Q1

REPORT INFORMATION
  Report Type: Spontaneous
  Country: US (occurrence: US)
  Receive Date: 20120531
  Receipt Date: 20130305
  Transmission Date: 20140127
  Serious: Yes (Hospitalization)
  Sender: FDA-Public Use
  Company Number: US-ELI_LILLY_AND_COMPANY-US201205007672

PATIENT
  Sex: Female

DRUGS (14)
  1. FORTEO [Suspect]
     Indication: OSTEOPOROSIS
     Dosage: 20 UG, QD
     Dates: start: 20120221, end: 20121025
  2. FORTEO [Suspect]
     Dosage: 20 UG, QD
     Dates: start: 20121206
  3. EVISTA [Suspect]
     Indication: OSTEOPOROSIS
     Dosage: 60 MG, QD
     Dates: start: 20120221
  4. LOVASTATIN [Concomitant]
     Dosage: UNK
  5. METOPROLOL [Concomitant]
     Dosage: UNK
  6. ENALAPRIL [Concomitant]
  7. OMEPRAZOLE [Concomitant]
     Dosage: UNK
  8. CALCIUM + VITAMIN D [Concomitant]
     Dosage: UNK
  9. ASPIRIN [Concomitant]
     Dosage: UNK
  10. CRANBERRY [Concomitant]
     Dosage: UNK
  11. MULTIVITAMIN [Concomitant]
     Dosage: UNK
  12. OSCAL                              /00751519/ [Concomitant]
     Dosage: UNK
  13. FIBER [Concomitant]
     Dosage: UNK
  14. CLARITIN [Concomitant]
     Dosage: UNK

REACTIONS (4)
  - Hernia [Recovering/Resolving]
  - Cholelithiasis [Recovering/Resolving]
  - Medication error [Unknown]
  - Hypoacusis [Unknown]
